FAERS Safety Report 11202405 (Version 1)
Quarter: 2015Q2

REPORT INFORMATION
  Report Type: Spontaneous
  Country: DK (occurrence: DK)
  Receive Date: 20150619
  Receipt Date: 20150619
  Transmission Date: 20150821
  Serious: Yes (Hospitalization, Other)
  Sender: FDA-Public Use
  Company Number: DK-PFIZER INC-2015201966

PATIENT
  Age: 43 Year
  Sex: Female

DRUGS (2)
  1. CARBOCAINE [Suspect]
     Active Substance: MEPIVACAINE HYDROCHLORIDE
     Indication: MUSCULOSKELETAL PAIN
     Dosage: UNK
     Dates: start: 20120918
  2. DEPO-MEDROL [Suspect]
     Active Substance: METHYLPREDNISOLONE ACETATE
     Indication: MUSCULOSKELETAL PAIN
     Dosage: STRENGTH: 40 MG/ML
     Dates: start: 20120918

REACTIONS (10)
  - Sensory disturbance [Unknown]
  - Anxiety [Unknown]
  - Dizziness [Unknown]
  - Hemiplegia [Unknown]
  - Fatigue [Unknown]
  - Psychogenic seizure [Unknown]
  - Hypersensitivity [Unknown]
  - Malaise [Unknown]
  - Hemiparesis [Unknown]
  - Facial paresis [Unknown]

NARRATIVE: CASE EVENT DATE: 20120918
